FAERS Safety Report 16107973 (Version 1)
Quarter: 2019Q1

REPORT INFORMATION
  Report Type: Spontaneous
  Country: US (occurrence: US)
  Receive Date: 20190322
  Receipt Date: 20190322
  Transmission Date: 20190418
  Serious: No
  Sender: FDA-Public Use
  Company Number: US-ARRAY-2019-05188

PATIENT

DRUGS (4)
  1. MEKTOVI [Suspect]
     Active Substance: BINIMETINIB
     Indication: NEOPLASM MALIGNANT
     Dosage: 45 MG, BID
     Route: 048
  2. BRAFTOVI [Suspect]
     Active Substance: ENCORAFENIB
     Dosage: 300 MG, QD
     Route: 048
  3. MEKTOVI [Suspect]
     Active Substance: BINIMETINIB
     Dosage: 60 MG, QD
     Route: 048
  4. BRAFTOVI [Suspect]
     Active Substance: ENCORAFENIB
     Indication: NEOPLASM MALIGNANT
     Dosage: 450 MG, QD
     Route: 048

REACTIONS (2)
  - Diarrhoea [Unknown]
  - Product use in unapproved indication [Unknown]
